FAERS Safety Report 4908091-6 (Version None)
Quarter: 2006Q1

REPORT INFORMATION
  Report Type: 
  Country: None (occurrence: None)
  Receive Date: 20060210
  Receipt Date: 20050902
  Transmission Date: 20060701
  Serious: Yes (Death)
  Sender: FDA-Public Use
  Company Number: SE-ROCHE-416746

PATIENT
  Sex: Male

DRUGS (3)
  1. XELODA [Suspect]
     Indication: COLON CANCER
     Route: 048
     Dates: start: 20050131, end: 20050213
  2. XELODA [Suspect]
     Route: 048
     Dates: start: 20050228, end: 20050308
  3. CAMPTOSAR [Concomitant]
     Indication: COLON CANCER
     Route: 065

REACTIONS (1)
  - BLOOD CREATININE INCREASED [None]
